FAERS Safety Report 16690192 (Version 1)
Quarter: 2019Q3

REPORT INFORMATION
  Report Type: Spontaneous
  Country: GB (occurrence: GB)
  Receive Date: 20190809
  Receipt Date: 20190809
  Transmission Date: 20191004
  Serious: Yes (Hospitalization)
  Sender: FDA-Public Use
  Company Number: GB-ALLERGAN-1932969US

PATIENT
  Sex: Female
  Weight: 65 kg

DRUGS (1)
  1. BOTOX [Suspect]
     Active Substance: ONABOTULINUMTOXINA
     Indication: SKIN COSMETIC PROCEDURE
     Dosage: 1 ML, SINGLE
     Route: 051
     Dates: start: 20180921, end: 20180921

REACTIONS (8)
  - Tympanic membrane disorder [Not Recovered/Not Resolved]
  - Otitis media [Recovered/Resolved with Sequelae]
  - Ear pain [Unknown]
  - Mastoiditis [Recovered/Resolved with Sequelae]
  - Deafness neurosensory [Unknown]
  - Pain in jaw [Unknown]
  - Deafness [Not Recovered/Not Resolved]
  - Cholesteatoma [Recovered/Resolved with Sequelae]

NARRATIVE: CASE EVENT DATE: 20180922
